FAERS Safety Report 9866845 (Version 1)
Quarter: 2014Q1

REPORT INFORMATION
  Report Type: Report from Study
  Country: US (occurrence: US)
  Receive Date: 20140204
  Receipt Date: 20140204
  Transmission Date: 20141002
  Serious: Yes (Life-Threatening, Hospitalization, Disabling, Other)
  Sender: FDA-Public Use
  Company Number: US-ROCHE-1340185

PATIENT
  Age: 70 Year
  Sex: Female
  Weight: 61.29 kg

DRUGS (21)
  1. ACTEMRA [Suspect]
     Indication: RHEUMATOID ARTHRITIS
     Dosage: LAST INFUSION ON 14/AUG/2013
     Route: 042
     Dates: start: 20120906
  2. ACTEMRA [Suspect]
     Route: 065
     Dates: start: 20130717
  3. ACTEMRA [Suspect]
     Route: 042
     Dates: start: 20130619
  4. ACTEMRA [Suspect]
     Route: 042
     Dates: start: 20130522
  5. ACTEMRA [Suspect]
     Route: 042
     Dates: start: 20130814
  6. PLAQUENIL [Concomitant]
     Indication: RHEUMATOID ARTHRITIS
     Route: 065
     Dates: start: 201311
  7. PREDNISONE [Concomitant]
     Indication: RHEUMATOID ARTHRITIS
     Route: 048
     Dates: start: 201311
  8. CELEBREX [Concomitant]
     Route: 048
  9. AZULFIDINE [Concomitant]
     Dosage: 2 TABS BID
     Route: 065
  10. PRILOSEC [Concomitant]
     Dosage: AT MORNING
     Route: 048
  11. CLARITIN [Concomitant]
     Route: 048
  12. THERAGRAN VITAMIN [Concomitant]
     Route: 048
  13. VITAMIN D3 [Concomitant]
     Route: 048
  14. AMBIEN [Concomitant]
     Route: 048
  15. ALEVE [Concomitant]
     Route: 048
  16. BC ARTHRITIS FORMULA [Concomitant]
     Route: 048
  17. TENORETIC [Concomitant]
     Route: 048
  18. FERROUS SULFATE [Concomitant]
     Route: 048
  19. FLONASE [Concomitant]
     Route: 045
  20. ROXICODONE [Concomitant]
     Dosage: 1-2 TABLETS
     Route: 048
  21. MIRALAX [Concomitant]
     Indication: CONSTIPATION
     Route: 048

REACTIONS (9)
  - Pneumonia bacterial [Recovered/Resolved]
  - Atrial fibrillation [Recovered/Resolved]
  - Hypotension [Unknown]
  - Traumatic lung injury [Not Recovered/Not Resolved]
  - Sepsis [Recovered/Resolved]
  - Pneumothorax [Unknown]
  - Empyema [Unknown]
  - Nerve injury [Unknown]
  - Hypoaesthesia [Unknown]
